FAERS Safety Report 18268553 (Version 1)
Quarter: 2020Q3

REPORT INFORMATION
  Report Type: Spontaneous
  Country: US (occurrence: US)
  Receive Date: 20200915
  Receipt Date: 20200915
  Transmission Date: 20201103
  Serious: No
  Sender: FDA-Public Use
  Company Number: US-PERRIGO-20US011106

PATIENT
  Age: 79 Year
  Sex: Female

DRUGS (1)
  1. MINOXIDIL. [Suspect]
     Active Substance: MINOXIDIL
     Indication: ALOPECIA
     Dosage: .5 ML, BID
     Route: 061
     Dates: start: 2019, end: 20200727

REACTIONS (4)
  - Visual impairment [Not Recovered/Not Resolved]
  - Application site pain [Not Recovered/Not Resolved]
  - Application site papules [Not Recovered/Not Resolved]
  - Underdose [Recovered/Resolved]

NARRATIVE: CASE EVENT DATE: 2019
